FAERS Safety Report 6738017-4 (Version None)
Quarter: 2010Q2

REPORT INFORMATION
  Report Type: 
  Country: None (occurrence: None)
  Receive Date: 20100524
  Receipt Date: 20100517
  Transmission Date: 20101027
  Serious: Yes (Death)
  Sender: FDA-Public Use
  Company Number: JP-ROCHE-704239

PATIENT
  Sex: Female

DRUGS (16)
  1. TOCILIZUMAB [Suspect]
     Indication: RHEUMATOID ARTHRITIS
     Route: 041
     Dates: start: 20080830, end: 20080830
  2. TOCILIZUMAB [Suspect]
     Route: 041
     Dates: start: 20080927, end: 20080927
  3. TOCILIZUMAB [Suspect]
     Route: 041
     Dates: start: 20081018, end: 20081018
  4. TOCILIZUMAB [Suspect]
     Route: 041
     Dates: start: 20081115, end: 20081115
  5. TOCILIZUMAB [Suspect]
     Route: 041
     Dates: start: 20081213, end: 20081213
  6. TOCILIZUMAB [Suspect]
     Route: 041
     Dates: start: 20090110, end: 20090110
  7. TOCILIZUMAB [Suspect]
     Route: 041
     Dates: start: 20090207, end: 20090207
  8. TOCILIZUMAB [Suspect]
     Route: 041
     Dates: start: 20090307, end: 20100313
  9. RIMATIL [Concomitant]
     Route: 048
  10. METHOTREXATE [Concomitant]
     Dosage: FORM: PERORAL AGENT NOTE: AMOUNT 2
     Route: 048
     Dates: end: 20081003
  11. ISCOTIN [Concomitant]
     Dosage: FORM: PERORAL AGENT
     Route: 048
  12. PREDONINE [Concomitant]
     Dosage: FORM: PERORAL AGENT
     Route: 048
  13. TEPRENONE [Concomitant]
     Dosage: DOSE FORM: PERORAL AGENT.
     Route: 048
  14. ASPIRIN [Concomitant]
     Dosage: FORM: ENTERIC COATING DRUG
     Route: 048
  15. LANSOPRAZOLE [Concomitant]
     Dosage: DRUG NAME: LASOPRAN.
     Route: 048
  16. FAROM [Concomitant]
     Dosage: FORM: PERORAL AGENT
     Route: 048
     Dates: start: 20080927, end: 20081003

REACTIONS (1)
  - BILE DUCT CANCER [None]
